FAERS Safety Report 4544507-5 (Version None)
Quarter: 2004Q4

REPORT INFORMATION
  Report Type: 
  Country: None (occurrence: None)
  Receive Date: 20041230
  Receipt Date: 20041220
  Transmission Date: 20050328
  Serious: Yes (Other)
  Sender: FDA-Public Use
  Company Number: 2004-0007868

PATIENT
  Age: 30 Year
  Sex: Male

DRUGS (4)
  1. VIREAD [Suspect]
     Indication: HIV INFECTION
     Dosage: 300 MG, 1 IN 1 D, ORAL
     Route: 048
     Dates: start: 20040603
  2. EMPTRIVA (EMTRICITABINE) [Suspect]
     Indication: HIV INFECTION
     Dosage: 200 MG, 1 IN 1 D, ORAL
     Route: 048
     Dates: start: 20040820
  3. EFAVIRENZ (EFAVIRENZ) [Concomitant]
  4. BACTRIM [Concomitant]

REACTIONS (2)
  - HYPOCALCAEMIA [None]
  - VITAMIN D DECREASED [None]
